FAERS Safety Report 25628417 (Version 2)
Quarter: 2025Q3

REPORT INFORMATION
  Report Type: Spontaneous
  Country: EU (occurrence: EU)
  Receive Date: 20250731
  Receipt Date: 20250808
  Transmission Date: 20251020
  Serious: Yes (Other)
  Sender: ALCON
  Company Number: EU-LRB-01075164

PATIENT

DRUGS (1)
  1. ATROPINE [Suspect]
     Active Substance: ATROPINE
     Indication: Product used for unknown indication
     Dates: start: 20231218

REACTIONS (5)
  - Hyperthermia [Recovered/Resolved]
  - Hypohidrosis [Recovered/Resolved]
  - Dry mouth [Recovered/Resolved]
  - Wrong technique in product usage process [Recovered/Resolved]
  - Heat stroke [Unknown]
